FAERS Safety Report 5415073-7 (Version None)
Quarter: 2007Q3

REPORT INFORMATION
  Report Type: 
  Country: None (occurrence: None)
  Receive Date: 20070815
  Receipt Date: 20070516
  Transmission Date: 20080115
  Serious: No
  Sender: FDA-Public Use
  Company Number: A0651667A

PATIENT
  Age: 86 Year
  Sex: Female

DRUGS (8)
  1. COREG CR [Suspect]
     Dosage: 40MG PER DAY
     Route: 048
     Dates: start: 20070514, end: 20070514
  2. SYNTHROID [Concomitant]
  3. ASPIRIN [Concomitant]
  4. ISOSORBIDE DINITRATE [Concomitant]
  5. WARFARIN SODIUM [Concomitant]
  6. LIPITOR [Concomitant]
  7. CARDIZEM [Concomitant]
  8. BENICAR [Concomitant]

REACTIONS (6)
  - ABASIA [None]
  - INSOMNIA [None]
  - MUSCULOSKELETAL PAIN [None]
  - NAUSEA [None]
  - VISUAL DISTURBANCE [None]
  - VOMITING [None]
